FAERS Safety Report 8343238-3 (Version None)
Quarter: 2012Q2

REPORT INFORMATION
  Report Type: 
  Country: None (occurrence: None)
  Receive Date: 20120503
  Receipt Date: 20120430
  Transmission Date: 20120825
  Serious: Yes (Death)
  Sender: FDA-Public Use
  Company Number: 2012SP017897

PATIENT
  Sex: Female

DRUGS (4)
  1. XANAX [Concomitant]
  2. CYMBALTA [Concomitant]
  3. TOPAMAX [Concomitant]
  4. SAPHRIS [Suspect]
     Indication: BIPOLAR DISORDER
     Dates: start: 20111114

REACTIONS (1)
  - COMPLETED SUICIDE [None]
